FAERS Safety Report 7449673-X (Version None)
Quarter: 2011Q2

REPORT INFORMATION
  Report Type: 
  Country: None (occurrence: None)
  Receive Date: 20110421
  Receipt Date: 20110412
  Transmission Date: 20111010
  Serious: Yes (Life-Threatening, Hospitalization)
  Sender: FDA-Public Use
  Company Number: TPA2011A00839

PATIENT
  Age: 78 Year
  Sex: Female

DRUGS (5)
  1. FUROSEMIDE [Concomitant]
  2. ULORIC [Suspect]
     Indication: HYPERURICAEMIA
     Dosage: 120 MG (120 MG,1 IN 1 D)
     Route: 048
     Dates: start: 20100616, end: 20100630
  3. COLCHICINE [Concomitant]
  4. BISOPROLOL FUMARATE [Concomitant]
  5. BISOPROLOL FUMARATE [Concomitant]

REACTIONS (2)
  - THROMBOCYTOPENIC PURPURA [None]
  - THROMBOCYTOPENIA [None]
